FAERS Safety Report 13006018 (Version 1)
Quarter: 2016Q4

REPORT INFORMATION
  Report Type: Spontaneous
  Country: US (occurrence: US)
  Receive Date: 20161206
  Receipt Date: 20161206
  Transmission Date: 20170207
  Serious: Yes (Other)
  Sender: FDA-Public Use
  Company Number: None

PATIENT
  Age: 49 Year
  Sex: Male
  Weight: 103.5 kg

DRUGS (5)
  1. CIPROFLOXACIN. [Suspect]
     Active Substance: CIPROFLOXACIN
     Indication: PROSTATITIS
     Dosage: ?          QUANTITY:1 TABLET(S);?
     Route: 048
  2. OXYCODONE [Concomitant]
     Active Substance: OXYCODONE
  3. VITAMIN D [Concomitant]
     Active Substance: CHOLECALCIFEROL
  4. ADVIL [Concomitant]
     Active Substance: IBUPROFEN
  5. KLONOPIN [Concomitant]
     Active Substance: CLONAZEPAM

REACTIONS (15)
  - Paraesthesia [None]
  - Tremor [None]
  - Hypoacusis [None]
  - Gastrointestinal motility disorder [None]
  - Nervous system disorder [None]
  - Tendonitis [None]
  - Agitation [None]
  - Skin disorder [None]
  - Dizziness [None]
  - Cough [None]
  - Cystitis interstitial [None]
  - Panic reaction [None]
  - Neuralgia [None]
  - Productive cough [None]
  - Anxiety [None]

NARRATIVE: CASE EVENT DATE: 20130115
